FAERS Safety Report 21344690 (Version 2)
Quarter: 2022Q3

REPORT INFORMATION
  Report Type: Spontaneous
  Country: US (occurrence: US)
  Receive Date: 20220916
  Receipt Date: 20220926
  Transmission Date: 20221027
  Serious: No
  Sender: FDA-Public Use
  Company Number: US-SUNOVION-2022SUN002738AA

PATIENT
  Sex: Female

DRUGS (1)
  1. XOPENEX [Suspect]
     Active Substance: LEVALBUTEROL HYDROCHLORIDE
     Indication: Product used for unknown indication
     Dosage: 45 ?G
     Route: 055

REACTIONS (2)
  - Tremor [Not Recovered/Not Resolved]
  - Dizziness [Unknown]
